FAERS Safety Report 5797038-9 (Version None)
Quarter: 2008Q3

REPORT INFORMATION
  Report Type: 
  Country: None (occurrence: None)
  Receive Date: 20080701
  Receipt Date: 20080623
  Transmission Date: 20090109
  Serious: Yes (Hospitalization)
  Sender: FDA-Public Use
  Company Number: US-ELI_LILLY_AND_COMPANY-US200806005100

PATIENT
  Sex: Female

DRUGS (8)
  1. HUMATROPE [Suspect]
     Dosage: UNK, UNKNOWN
     Dates: start: 20030101, end: 20050101
  2. HUMATROPE [Suspect]
     Dosage: UNK, UNKNOWN
     Dates: start: 20080515
  3. TOPAMAX [Concomitant]
     Dosage: UNK, UNKNOWN
  4. LEVOTHYROXINE SODIUM [Concomitant]
     Dosage: UNK, UNKNOWN
  5. LAMICTAL [Concomitant]
     Dosage: UNK, UNKNOWN
  6. VESICARE [Concomitant]
     Dosage: UNK, UNKNOWN
  7. ZANAFLEX [Concomitant]
     Dosage: UNK, UNKNOWN
  8. ZYRTEC [Concomitant]
     Dosage: UNK, UNKNOWN

REACTIONS (2)
  - PARATHYROIDECTOMY [None]
  - PLANTAR FASCIITIS [None]
